FAERS Safety Report 15963810 (Version 1)
Quarter: 2019Q1

REPORT INFORMATION
  Report Type: Report from Study
  Country: ES (occurrence: ES)
  Receive Date: 20190214
  Receipt Date: 20190214
  Transmission Date: 20190417
  Serious: Yes (Hospitalization)
  Sender: FDA-Public Use
  Company Number: ES-MYLANLABS-2019M1013327

PATIENT
  Age: 89 Year
  Sex: Female

DRUGS (2)
  1. DERMATRANS? 5 MG/24 H TRANSDERMAL PATCH. (GLYCERYL TRINITRATE) [Suspect]
     Active Substance: NITROGLYCERIN
     Indication: CARDIAC FAILURE
     Dosage: 1 DOSAGE FORM, QD
     Route: 065
     Dates: start: 2016, end: 2016
  2. RAMIPRIL A [Suspect]
     Active Substance: RAMIPRIL
     Indication: CARDIAC FAILURE
     Dosage: 1 DOSAGE FORM, QD
     Route: 065
     Dates: start: 2016, end: 2016

REACTIONS (3)
  - Depressed mood [Unknown]
  - Hypotension [Unknown]
  - Presyncope [Unknown]

NARRATIVE: CASE EVENT DATE: 201601
